FAERS Safety Report 23596316 (Version 7)
Quarter: 2025Q1

REPORT INFORMATION
  Report Type: Spontaneous
  Country: US (occurrence: US)
  Receive Date: 20240305
  Receipt Date: 20250222
  Transmission Date: 20250408
  Serious: No
  Sender: SANOFI AVENTIS
  Company Number: US-SA-SAC20240228000662

PATIENT
  Age: 28 Year
  Sex: Male

DRUGS (3)
  1. DUPIXENT [Suspect]
     Active Substance: DUPILUMAB
     Indication: Eczema
     Route: 058
     Dates: start: 20240130, end: 20240130
  2. DUPIXENT [Suspect]
     Active Substance: DUPILUMAB
     Indication: Dermatitis atopic
     Dosage: 300 MG, QOW
     Route: 058
  3. TRIAMCINOLONE [Concomitant]
     Active Substance: TRIAMCINOLONE

REACTIONS (13)
  - Periorbital inflammation [Unknown]
  - Injection site mass [Unknown]
  - Eyelid skin dryness [Unknown]
  - Skin exfoliation [Unknown]
  - Erythema [Unknown]
  - Dry eye [Unknown]
  - Rash [Unknown]
  - Injection site bruising [Recovered/Resolved]
  - Eczema [Unknown]
  - Pruritus [Unknown]
  - Injection site pain [Recovered/Resolved]
  - Device physical property issue [Unknown]
  - Therapeutic response decreased [Unknown]

NARRATIVE: CASE EVENT DATE: 20240201
